FAERS Safety Report 7563704-8 (Version None)
Quarter: 2011Q2

REPORT INFORMATION
  Report Type: 
  Country: None (occurrence: None)
  Receive Date: 20110622
  Receipt Date: 20110610
  Transmission Date: 20111010
  Serious: Yes (Hospitalization)
  Sender: FDA-Public Use
  Company Number: PHHY2011US51110

PATIENT
  Age: 54 Year
  Sex: Male

DRUGS (4)
  1. AZITHROMYCIN [Suspect]
  2. CEFADROXIL [Suspect]
     Dosage: UNK
  3. EZETIMIBE/SIMVASTATIN [Suspect]
     Indication: HYPERCHOLESTEROLAEMIA
  4. ALLOPURINOL [Concomitant]
     Dosage: 300 MG, UNK

REACTIONS (11)
  - LEUKOCYTOCLASTIC VASCULITIS [None]
  - PALPABLE PURPURA [None]
  - PERIARTHRITIS [None]
  - SKIN ULCER [None]
  - ERYTHEMA [None]
  - OEDEMA [None]
  - JOINT SWELLING [None]
  - PYREXIA [None]
  - ARTHRALGIA [None]
  - RASH [None]
  - CHILLS [None]
